FAERS Safety Report 6107918-2 (Version None)
Quarter: 2009Q1

REPORT INFORMATION
  Report Type: 
  Country: None (occurrence: None)
  Receive Date: 20090309
  Receipt Date: 20090213
  Transmission Date: 20090719
  Serious: Yes (Death)
  Sender: FDA-Public Use
  Company Number: CA-MERCK-0902USA00632

PATIENT
  Age: 67 Year
  Sex: Male

DRUGS (7)
  1. STROMECTOL [Suspect]
     Indication: STRONGYLOIDIASIS
     Route: 065
  2. IVOMEC [Suspect]
     Indication: STRONGYLOIDIASIS
     Route: 058
     Dates: start: 20080101, end: 20080101
  3. HYDROCORTISONE [Concomitant]
     Route: 042
  4. FLUCONAZOLE [Concomitant]
     Route: 042
  5. CILASTATIN SODIUM AND IMIPENEM [Concomitant]
     Route: 042
  6. CIPROFLOXACIN [Concomitant]
     Route: 065
  7. AMINO ACIDS (UNSPECIFIED) AND CARBOHYDRATES (UNSPECIFIED) AND ELECTROL [Concomitant]
     Route: 065

REACTIONS (6)
  - DEPRESSED LEVEL OF CONSCIOUSNESS [None]
  - DRUG INEFFECTIVE [None]
  - INTENTIONAL DRUG MISUSE [None]
  - INTESTINAL PERFORATION [None]
  - MULTI-ORGAN FAILURE [None]
  - SEPTIC SHOCK [None]
